FAERS Safety Report 6112479-8 (Version None)
Quarter: 2009Q1

REPORT INFORMATION
  Report Type: 
  Country: None (occurrence: None)
  Receive Date: 20090312
  Receipt Date: 20090311
  Transmission Date: 20090719
  Serious: No
  Sender: FDA-Public Use
  Company Number: FR-JNJFOC-20090302379

PATIENT
  Age: 8 Decade
  Sex: Female

DRUGS (4)
  1. DURAGESIC-100 [Suspect]
     Route: 062
  2. DURAGESIC-100 [Suspect]
     Dosage: 2 PATCHES: 50?G/HR PLUS 12.5?G/HR
     Route: 062
  3. DURAGESIC-100 [Suspect]
     Indication: CANCER PAIN
     Route: 062
  4. ACTISKENAN [Concomitant]
     Route: 065

REACTIONS (1)
  - INAPPROPRIATE SCHEDULE OF DRUG ADMINISTRATION [None]
